FAERS Safety Report 8381854-3 (Version None)
Quarter: 2012Q2

REPORT INFORMATION
  Report Type: 
  Country: None (occurrence: None)
  Receive Date: 20120524
  Receipt Date: 20120520
  Transmission Date: 20120825
  Serious: Yes (Other)
  Sender: FDA-Public Use
  Company Number: US-BAYER-2012-049789

PATIENT
  Sex: Female

DRUGS (2)
  1. MIRENA [Suspect]
     Indication: CONTRACEPTION
     Dosage: 20 ?G/D, CONT
     Route: 015
     Dates: start: 20120417
  2. MIRENA [Suspect]
     Indication: MENORRHAGIA

REACTIONS (3)
  - SUPPRESSED LACTATION [None]
  - ABDOMINAL PAIN [None]
  - GENITAL HAEMORRHAGE [None]
